FAERS Safety Report 14030022 (Version 2)
Quarter: 2018Q1

REPORT INFORMATION
  Report Type: Report from Study
  Country: TR (occurrence: TR)
  Receive Date: 20171002
  Receipt Date: 20180123
  Transmission Date: 20180508
  Serious: Yes (Hospitalization)
  Sender: FDA-Public Use
  Company Number: TR-PFIZER INC-2017416699

PATIENT
  Age: 64 Year
  Sex: Female
  Weight: 89 kg

DRUGS (20)
  1. DESAL /00032601/ [Concomitant]
     Dosage: UNK
     Dates: start: 20140522
  2. PRADAXA [Concomitant]
     Active Substance: DABIGATRAN ETEXILATE MESYLATE
  3. ADALAT [Concomitant]
     Active Substance: NIFEDIPINE
     Dosage: UNK
     Dates: start: 20150627
  4. APIDRA [Concomitant]
     Active Substance: INSULIN GLULISINE
  5. CORASPIN [Concomitant]
     Active Substance: ASPIRIN
  6. NEXIVOL [Concomitant]
     Dosage: UNK
     Dates: start: 20160701
  7. COUMADIN [Concomitant]
     Active Substance: WARFARIN SODIUM
  8. LANTUS [Concomitant]
     Active Substance: INSULIN GLARGINE
     Dosage: UNK
     Dates: start: 2003
  9. PANTO /00223901/ [Concomitant]
  10. BLINDED THERAPY [Suspect]
     Active Substance: INVESTIGATIONAL PRODUCT
     Indication: CARDIAC FAILURE
     Dosage: UNK
     Route: 048
     Dates: start: 20160727, end: 20160731
  11. CORDURE [Concomitant]
  12. FERRO SANOL [Concomitant]
     Active Substance: FERROUS GLYCINE SULFATE
     Dosage: UNK
     Dates: start: 20160701
  13. CARDURA [Suspect]
     Active Substance: DOXAZOSIN MESYLATE
     Indication: HYPERTENSION
     Dosage: 8 MG, 2X/DAY
     Route: 048
     Dates: start: 20161215
  14. ALDACTONE [Concomitant]
     Active Substance: SPIRONOLACTONE
     Dosage: UNK
     Dates: start: 2013, end: 20170822
  15. CARDURA [Suspect]
     Active Substance: DOXAZOSIN MESYLATE
     Indication: ARRHYTHMIA
  16. NOVORAPID [Concomitant]
     Active Substance: INSULIN ASPART
     Dosage: UNK
     Dates: start: 2003
  17. ALDACTAZIDE [Concomitant]
     Active Substance: HYDROCHLOROTHIAZIDE\SPIRONOLACTONE
  18. NEXINA [Concomitant]
     Dosage: UNK
  19. ECOPIRIN [Concomitant]
     Active Substance: ASPIRIN
     Dosage: UNK
     Dates: start: 2006
  20. URIKOLIZ [Concomitant]
     Active Substance: ALLOPURINOL

REACTIONS (3)
  - Pulmonary hypertension [Recovering/Resolving]
  - Cardiac failure [Recovered/Resolved]
  - Condition aggravated [Recovered/Resolved]

NARRATIVE: CASE EVENT DATE: 20170217
